FAERS Safety Report 5689790-8 (Version None)
Quarter: 2008Q1

REPORT INFORMATION
  Report Type: 
  Country: None (occurrence: None)
  Receive Date: 20080328
  Receipt Date: 20080320
  Transmission Date: 20080703
  Serious: Yes (Hospitalization)
  Sender: FDA-Public Use
  Company Number: 2008BI007495

PATIENT
  Age: 58 Year
  Sex: Female
  Weight: 53.0709 kg

DRUGS (2)
  1. AVONEX [Suspect]
     Indication: MULTIPLE SCLEROSIS
     Dosage: 30 UG QW IM
     Route: 030
     Dates: start: 20020801
  2. METOPROLOL TARTRATE [Concomitant]

REACTIONS (5)
  - ANXIETY [None]
  - FALL [None]
  - HUMERUS FRACTURE [None]
  - MULTIPLE SCLEROSIS [None]
  - THIRST [None]
